FAERS Safety Report 4484983-X (Version None)
Quarter: 2004Q3

REPORT INFORMATION
  Report Type: 
  Country: None (occurrence: None)
  Receive Date: 20040921
  Receipt Date: 20030918
  Transmission Date: 20050211
  Serious: Yes (Hospitalization)
  Sender: FDA-Public Use
  Company Number: 163-20785-03090588

PATIENT
  Age: 65 Year
  Sex: Male
  Weight: 89 kg

DRUGS (6)
  1. THALOMID [Suspect]
     Indication: MULTIPLE MYELOMA
     Dosage: 50  MG, QOD, ORAL
     Route: 048
     Dates: start: 20020621
  2. PREDNISONE [Suspect]
     Indication: MULTIPLE MYELOMA
     Dosage: 50 MG, QOD
     Dates: start: 20020621, end: 20030901
  3. CENTRUM [Concomitant]
  4. ALDACTONE [Concomitant]
  5. ASPIRIN [Concomitant]
  6. NIFEDIPINE [Concomitant]

REACTIONS (10)
  - ASTHENIA [None]
  - CONSTIPATION [None]
  - DRY MOUTH [None]
  - DYSPHAGIA [None]
  - DYSPNOEA [None]
  - HYPERGLYCAEMIA [None]
  - OEDEMA PERIPHERAL [None]
  - THIRST [None]
  - URINE OUTPUT INCREASED [None]
  - VISION BLURRED [None]
